FAERS Safety Report 7940661-3 (Version None)
Quarter: 2011Q4

REPORT INFORMATION
  Report Type: 
  Country: None (occurrence: None)
  Receive Date: 20111128
  Receipt Date: 20111119
  Transmission Date: 20120403
  Serious: Yes (Other)
  Sender: FDA-Public Use
  Company Number: TR-JNJFOC-20110600051

PATIENT
  Age: 45 Year
  Sex: Female
  Weight: 78 kg

DRUGS (4)
  1. GRANISETRON [Concomitant]
     Route: 065
  2. ULCURAN [Concomitant]
     Route: 065
  3. DEXAMETHASONE [Concomitant]
     Route: 065
  4. DOXORUBICIN HYDROCHLORIDE [Suspect]
     Indication: OVARIAN CANCER RECURRENT
     Route: 042
     Dates: start: 20110301, end: 20110516

REACTIONS (1)
  - SKIN REACTION [None]
